FAERS Safety Report 9956396 (Version 2)
Quarter: 2014Q1

REPORT INFORMATION
  Report Type: Spontaneous
  Country: PR (occurrence: PR)
  Receive Date: 20140304
  Receipt Date: 20140304
  Transmission Date: 20141002
  Serious: No
  Sender: FDA-Public Use
  Company Number: PR-ABBVIE-12P-131-0904336-00

PATIENT
  Age: 38 Year
  Sex: Male
  Weight: 93.07 kg

DRUGS (2)
  1. HUMIRA 40 MG/0.8 ML PEN [Suspect]
     Indication: RHEUMATOID ARTHRITIS
     Route: 058
     Dates: start: 201103, end: 201202
  2. ORENCIA [Concomitant]
     Indication: RHEUMATOID ARTHRITIS
     Dates: start: 201203

REACTIONS (4)
  - Nasopharyngitis [Recovered/Resolved]
  - Drug ineffective [Recovered/Resolved]
  - Musculoskeletal stiffness [Recovered/Resolved]
  - Pain [Recovered/Resolved]
